FAERS Safety Report 6355343-1 (Version None)
Quarter: 2009Q3

REPORT INFORMATION
  Report Type: 
  Country: None (occurrence: None)
  Receive Date: 20090914
  Receipt Date: 20090831
  Transmission Date: 20100115
  Serious: No
  Sender: FDA-Public Use
  Company Number: US-JNJFOC-20090900499

PATIENT
  Age: 45 Year
  Sex: Male
  Weight: 81.65 kg

DRUGS (2)
  1. INVEGA [Suspect]
     Indication: POST-TRAUMATIC STRESS DISORDER
     Route: 048
  2. LAMICTAL [Concomitant]
     Indication: AFFECTIVE DISORDER
     Route: 048

REACTIONS (1)
  - SOMNOLENCE [None]
